FAERS Safety Report 24125542 (Version 2)
Quarter: 2024Q3

REPORT INFORMATION
  Report Type: Report from Study
  Country: US (occurrence: US)
  Receive Date: 20240723
  Receipt Date: 20240913
  Transmission Date: 20241016
  Serious: Yes (Other)
  Sender: ASTELLAS
  Company Number: US-ASTELLAS-2024US020509

PATIENT
  Age: 53 Year
  Sex: Male

DRUGS (2)
  1. ENZALUTAMIDE [Suspect]
     Active Substance: ENZALUTAMIDE
     Indication: Prostate cancer
     Route: 048
     Dates: start: 20230908
  2. ORGOVYX [Concomitant]
     Active Substance: RELUGOLIX
     Indication: Prostate cancer
     Route: 065
     Dates: start: 20231129

REACTIONS (7)
  - Major depression [Unknown]
  - Erectile dysfunction [Unknown]
  - Weight increased [Unknown]
  - Muscle disorder [Unknown]
  - Rash [Unknown]
  - Pain [Unknown]
  - Irritability [Unknown]
